FAERS Safety Report 15539172 (Version 3)
Quarter: 2019Q4

REPORT INFORMATION
  Report Type: Report from Study
  Country: US (occurrence: US)
  Receive Date: 20181022
  Receipt Date: 20191025
  Transmission Date: 20200122
  Serious: Yes (Death, Hospitalization)
  Sender: FDA-Public Use
  Company Number: US-ACTELION-A-NJ2018-180465

PATIENT
  Age: 45 Year
  Sex: Female
  Weight: 79.37 kg

DRUGS (4)
  1. UPTRAVI [Suspect]
     Active Substance: SELEXIPAG
     Indication: PULMONARY HYPERTENSION
     Dosage: 200 MCG, BID
     Route: 048
  2. WARFARIN [Concomitant]
     Active Substance: WARFARIN
  3. OPSUMIT [Concomitant]
     Active Substance: MACITENTAN
     Indication: PULMONARY HYPERTENSION
     Route: 048
  4. ESBRIET [Concomitant]
     Active Substance: PIRFENIDONE

REACTIONS (4)
  - Terminal state [Unknown]
  - Death [Fatal]
  - Hospitalisation [Unknown]
  - Diagnostic procedure [Unknown]

NARRATIVE: CASE EVENT DATE: 20191010
